FAERS Safety Report 9199416 (Version 2)
Quarter: 2013Q3

REPORT INFORMATION
  Report Type: Spontaneous
  Country: US (occurrence: US)
  Receive Date: 20130329
  Receipt Date: 20130716
  Transmission Date: 20140515
  Serious: No
  Sender: FDA-Public Use
  Company Number: US-009507513-1303USA013278

PATIENT
  Sex: Female
  Weight: 77.98 kg

DRUGS (4)
  1. MIRALAX [Suspect]
     Indication: CONSTIPATION PROPHYLAXIS
     Dosage: 8.5 G, UNKNOWN
     Route: 048
  2. MIRALAX [Suspect]
     Indication: MEDICAL OBSERVATION
  3. LEVOTHYROXINE SODIUM [Concomitant]
     Indication: HYPOTHYROIDISM
     Dosage: UNK, UNKNOWN
  4. NEUROTIN (ACETYLCARNITINE HYDROCHLORIDE) [Concomitant]
     Indication: SKIN ULCER
     Dosage: UNK, UNKNOWN

REACTIONS (5)
  - Abdominal pain [Recovered/Resolved]
  - Diarrhoea [Recovered/Resolved]
  - Drug effect increased [Unknown]
  - Inappropriate schedule of drug administration [Unknown]
  - Underdose [Unknown]
